FAERS Safety Report 4413993-3 (Version None)
Quarter: 2004Q3

REPORT INFORMATION
  Report Type: 
  Country: None (occurrence: None)
  Receive Date: 20040728
  Receipt Date: 20040714
  Transmission Date: 20050211
  Serious: Yes (Death)
  Sender: FDA-Public Use
  Company Number: JP-JNJFOC-20040704582

PATIENT
  Age: 63 Year
  Sex: Male

DRUGS (10)
  1. FENTANYL [Suspect]
     Indication: CANCER PAIN
     Dosage: 5 MG, 1 IN 72 HOUR, TRANSDERMAL; SEE IMAGE
     Route: 062
     Dates: start: 20030704, end: 20030718
  2. FENTANYL [Suspect]
     Indication: CANCER PAIN
     Dosage: 5 MG, 1 IN 72 HOUR, TRANSDERMAL; SEE IMAGE
     Route: 062
     Dates: start: 20030719, end: 20030817
  3. FENTANYL [Suspect]
     Indication: CANCER PAIN
     Dosage: 5 MG, 1 IN 72 HOUR, TRANSDERMAL; SEE IMAGE
     Route: 062
     Dates: start: 20030818, end: 20030823
  4. FENTANYL [Suspect]
     Indication: CANCER PAIN
     Dosage: 5 MG, 1 IN 72 HOUR, TRANSDERMAL; SEE IMAGE
     Route: 062
     Dates: start: 20030824, end: 20030827
  5. FENTANYL [Suspect]
     Indication: CANCER PAIN
     Dosage: 5 MG, 1 IN 72 HOUR, TRANSDERMAL; SEE IMAGE
     Route: 062
     Dates: start: 20030828, end: 20031105
  6. KADIAN [Concomitant]
  7. MORPHINE HYDROCHLORIDE [Concomitant]
  8. BUCLADESINE SODIUM [Concomitant]
  9. ROPION (FLURBIPROFEN AXETIL) [Concomitant]
  10. HYDROXYZINE HCL [Concomitant]

REACTIONS (6)
  - BACK PAIN [None]
  - DUODENAL PERFORATION [None]
  - EROSIVE DUODENITIS [None]
  - PRODUCTIVE COUGH [None]
  - PURULENCE [None]
  - PYREXIA [None]
